FAERS Safety Report 11924855 (Version 1)
Quarter: 2016Q1

REPORT INFORMATION
  Report Type: Spontaneous
  Country: US (occurrence: US)
  Receive Date: 20160118
  Receipt Date: 20160118
  Transmission Date: 20160526
  Serious: Yes (Other)
  Sender: FDA-Public Use
  Company Number: US-MALLINCKRODT-T201505297

PATIENT
  Age: 63 Year
  Sex: Female
  Weight: 46 kg

DRUGS (14)
  1. BABY ASPIRIN [Concomitant]
     Active Substance: ASPIRIN
  2. LORATADINE. [Concomitant]
     Active Substance: LORATADINE
  3. VICKS NYQUIL [Concomitant]
     Active Substance: ACETAMINOPHEN\DEXTROMETHORPHAN HYDROBROMIDE\DOXYLAMINE SUCCINATE
  4. FENTANYL TRANSDERMAL SYSTEM [Suspect]
     Active Substance: FENTANYL
     Indication: BACK PAIN
     Dosage: 50 MCG/HR EVERY 3 DAYS
     Route: 062
     Dates: start: 2015
  5. SEROQUEL [Concomitant]
     Active Substance: QUETIAPINE FUMARATE
  6. HCTZ [Concomitant]
     Active Substance: HYDROCHLOROTHIAZIDE
     Dosage: 25 MG
  7. CENTRUM SILVER [Concomitant]
     Active Substance: MINERALS\VITAMINS
  8. ATIVAN [Concomitant]
     Active Substance: LORAZEPAM
  9. TYLENOL ARTHRITIS PAIN [Concomitant]
     Active Substance: ACETAMINOPHEN
  10. SOMA [Concomitant]
     Active Substance: CARISOPRODOL
  11. BONIVA [Concomitant]
     Active Substance: IBANDRONATE SODIUM
  12. FENTANYL TRANSDERMAL SYSTEM [Suspect]
     Active Substance: FENTANYL
     Dosage: 50 MCG/HR EVERY 3 DAYS
     Route: 062
     Dates: start: 2015
  13. ARICEPT [Concomitant]
     Active Substance: DONEPEZIL HYDROCHLORIDE
  14. GAS-X [Concomitant]
     Active Substance: DIMETHICONE

REACTIONS (4)
  - Product adhesion issue [Not Recovered/Not Resolved]
  - Weight decreased [Recovered/Resolved]
  - Wrong technique in product usage process [Not Recovered/Not Resolved]
  - Intestinal infarction [Recovered/Resolved]

NARRATIVE: CASE EVENT DATE: 201507
